FAERS Safety Report 7012489-2 (Version None)
Quarter: 2010Q3

REPORT INFORMATION
  Report Type: 
  Country: None (occurrence: None)
  Receive Date: 20100924
  Receipt Date: 20100922
  Transmission Date: 20110219
  Serious: Yes (Other)
  Sender: FDA-Public Use
  Company Number: GB-BRISTOL-MYERS SQUIBB COMPANY-15298557

PATIENT
  Age: 52 Year
  Sex: Female
  Weight: 73 kg

DRUGS (2)
  1. ARIPIPRAZOLE [Suspect]
     Route: 065
  2. RISPERDAL [Suspect]
     Indication: PSYCHOTIC DISORDER
     Dosage: REDUCED TO 6MG FROM 2010
     Route: 048
     Dates: start: 20020101

REACTIONS (2)
  - HYPERPROLACTINAEMIA [None]
  - PSYCHOTIC DISORDER [None]
